FAERS Safety Report 7568676-8 (Version None)
Quarter: 2011Q2

REPORT INFORMATION
  Report Type: 
  Country: None (occurrence: None)
  Receive Date: 20110617
  Receipt Date: 20110602
  Transmission Date: 20111010
  Serious: Yes (Other)
  Sender: FDA-Public Use
  Company Number: AUR-APL-2011-02476

PATIENT
  Age: 28 Year
  Sex: Male

DRUGS (6)
  1. CLOZAPINE [Suspect]
     Indication: SCHIZOPHRENIA
     Dosage: ORAL
     Route: 048
     Dates: start: 20060902, end: 20110419
  2. ARIRIPRAZOLE (ARIPIPRAZOLE) [Concomitant]
  3. HYOSCINE HBR HYT [Concomitant]
  4. MIRTAZAPINE [Suspect]
     Indication: PRODUCT USED FOR UNKNOWN INDICATION
     Dates: end: 20110504
  5. CLONAZEPAM [Concomitant]
  6. OMACOR (OMEGA-3-AC [Concomitant]

REACTIONS (2)
  - WHITE BLOOD CELL COUNT DECREASED [None]
  - NEUTROPENIA [None]
